FAERS Safety Report 4470046-6 (Version None)
Quarter: 2004Q3

REPORT INFORMATION
  Report Type: 
  Country: None (occurrence: None)
  Receive Date: 20040920
  Receipt Date: 20040802
  Transmission Date: 20050211
  Serious: Yes (Other)
  Sender: FDA-Public Use
  Company Number: PHEH2004US08333

PATIENT
  Age: 75 Year
  Sex: Female

DRUGS (5)
  1. ZOMETA [Suspect]
     Indication: BREAST CANCER STAGE II
     Dosage: 4 MG, ONCE/SINGLE, INTRAVENOUS
     Route: 042
     Dates: start: 20040210
  2. CARDIZEM [Concomitant]
  3. VALIUM [Concomitant]
  4. GLUCOTROL [Concomitant]
  5. OSCAL 500-D [Concomitant]

REACTIONS (1)
  - PYREXIA [None]
